FAERS Safety Report 8539415-9 (Version None)
Quarter: 2012Q3

REPORT INFORMATION
  Report Type: 
  Country: None (occurrence: None)
  Receive Date: 20120726
  Receipt Date: 20120724
  Transmission Date: 20120928
  Serious: Yes (Other)
  Sender: FDA-Public Use
  Company Number: CA-JNJFOC-20120707223

PATIENT
  Sex: Female
  Weight: 127 kg

DRUGS (10)
  1. PANTOPRAZOLE SODIUM [Concomitant]
  2. STELARA [Suspect]
     Indication: PSORIASIS
     Route: 058
     Dates: start: 20111026, end: 20120713
  3. HYDROCHLOROTHIAZIDE [Concomitant]
  4. XALATAN [Concomitant]
  5. CITALOPRAM HYDROBROMIDE [Concomitant]
  6. FOLIC ACID [Concomitant]
  7. PENNSAID [Concomitant]
  8. NAPROXEN [Concomitant]
  9. SYNTHROID [Concomitant]
  10. ATACAND [Concomitant]

REACTIONS (1)
  - RETINAL DETACHMENT [None]
